FAERS Safety Report 19699885 (Version 1)
Quarter: 2021Q3

REPORT INFORMATION
  Report Type: Report from Study
  Country: None (occurrence: RO)
  Receive Date: 20210813
  Receipt Date: 20210813
  Transmission Date: 20211014
  Serious: Yes (Hospitalization, Other)
  Sender: FDA-Public Use
  Company Number: RO-ABBVIE-21K-135-3759115-00

PATIENT
  Age: 40 Year
  Sex: Female

DRUGS (2)
  1. CONTROLOC [Concomitant]
     Active Substance: PANTOPRAZOLE SODIUM
     Indication: ANTICOAGULANT THERAPY
     Route: 048
     Dates: start: 20210131
  2. HUMIRA [Suspect]
     Active Substance: ADALIMUMAB
     Indication: CROHN^S DISEASE
     Route: 058
     Dates: start: 20200615

REACTIONS (18)
  - Intracranial meningioma malignant [Not Recovered/Not Resolved]
  - Hyperaesthesia [Not Recovered/Not Resolved]
  - Headache [Not Recovered/Not Resolved]
  - Anal incontinence [Recovered/Resolved]
  - Frequent bowel movements [Recovering/Resolving]
  - Skin burning sensation [Not Recovered/Not Resolved]
  - Chest pain [Not Recovered/Not Resolved]
  - COVID-19 [Not Recovered/Not Resolved]
  - Amylase increased [Not Recovered/Not Resolved]
  - Hyperaesthesia [Not Recovered/Not Resolved]
  - Respiratory tract infection bacterial [Not Recovered/Not Resolved]
  - Eye pain [Not Recovered/Not Resolved]
  - Ear pain [Not Recovered/Not Resolved]
  - Delirium [Recovered/Resolved]
  - Blood glucose increased [Recovered/Resolved]
  - Pollakiuria [Not Recovered/Not Resolved]
  - Pancreatitis acute [Not Recovered/Not Resolved]
  - Blood glucose decreased [Not Recovered/Not Resolved]

NARRATIVE: CASE EVENT DATE: 202101
